FAERS Safety Report 7602551-5 (Version None)
Quarter: 2011Q3

REPORT INFORMATION
  Report Type: 
  Country: None (occurrence: None)
  Receive Date: 20110701
  Receipt Date: 20110217
  Transmission Date: 20111222
  Serious: Yes (Other)
  Sender: FDA-Public Use
  Company Number: SIM_00012_2011

PATIENT
  Sex: Female

DRUGS (1)
  1. DRY EYE RELIEF (HOMEOPATHIC) [Suspect]
     Indication: DRY EYE
     Dosage: (DF OPHTHALMIC)
     Route: 047
     Dates: start: 20110216, end: 20110216

REACTIONS (12)
  - EYE IRRITATION [None]
  - URTICARIA [None]
  - OCULAR HYPERAEMIA [None]
  - LACRIMATION INCREASED [None]
  - VISION BLURRED [None]
  - EYE PAIN [None]
  - EYE PRURITUS [None]
  - CHOKING SENSATION [None]
  - EYE SWELLING [None]
  - ERYTHEMA OF EYELID [None]
  - HYPERSENSITIVITY [None]
  - FEELING ABNORMAL [None]
